FAERS Safety Report 8490206-7 (Version None)
Quarter: 2012Q3

REPORT INFORMATION
  Report Type: 
  Country: None (occurrence: None)
  Receive Date: 20120705
  Receipt Date: 20110825
  Transmission Date: 20120928
  Serious: No
  Sender: FDA-Public Use
  Company Number: US-BAUSCH-2011BL005686

PATIENT
  Age: 60 Year
  Sex: Female

DRUGS (3)
  1. OPCON-A [Suspect]
     Indication: ABNORMAL SENSATION IN EYE
     Route: 047
     Dates: start: 20110825, end: 20110825
  2. OPCON-A [Suspect]
     Indication: DRY EYE
     Route: 047
     Dates: start: 20110825, end: 20110825
  3. OPCON-A [Suspect]
     Indication: OFF LABEL USE
     Route: 047
     Dates: start: 20110825, end: 20110825

REACTIONS (1)
  - MYDRIASIS [None]
